FAERS Safety Report 7626621-0 (Version None)
Quarter: 2011Q3

REPORT INFORMATION
  Report Type: 
  Country: None (occurrence: None)
  Receive Date: 20110714
  Receipt Date: 20110706
  Transmission Date: 20111222
  Serious: Yes (Other)
  Sender: FDA-Public Use
  Company Number: UTC-008431

PATIENT
  Age: 50 Year
  Sex: Male

DRUGS (1)
  1. TYVASO [Suspect]
     Indication: COR PULMONALE CHRONIC
     Dosage: 216 MCG (54 MCG,4 IN 1 D),INHALATION
     Route: 055
     Dates: start: 20110518, end: 20110601

REACTIONS (4)
  - ARTHRALGIA [None]
  - IRRITABILITY [None]
  - PAIN [None]
  - DEPRESSION [None]
